FAERS Safety Report 16153969 (Version 1)
Quarter: 2019Q2

REPORT INFORMATION
  Report Type: Spontaneous
  Country: US (occurrence: US)
  Receive Date: 20190403
  Receipt Date: 20190403
  Transmission Date: 20190711
  Serious: No
  Sender: FDA-Public Use
  Company Number: US-PFIZER INC-2019139652

PATIENT
  Age: 72 Year
  Sex: Female
  Weight: 92.8 kg

DRUGS (1)
  1. NICOTROL [Suspect]
     Active Substance: NICOTINE
     Dosage: UNK (10MG CARTRIDGE (4 MG DELIVERED))

REACTIONS (2)
  - Prescription drug used without a prescription [Unknown]
  - Hypoacusis [Unknown]
